FAERS Safety Report 9619350 (Version 1)
Quarter: 2013Q4

REPORT INFORMATION
  Report Type: Report from Study
  Country: US (occurrence: US)
  Receive Date: 20131014
  Receipt Date: 20131014
  Transmission Date: 20140711
  Serious: Yes (Hospitalization)
  Sender: FDA-Public Use
  Company Number: US-ABBVIE-13P-163-1154787-00

PATIENT
  Age: 54 Year
  Sex: Male
  Weight: 70.37 kg

DRUGS (5)
  1. HUMIRA [Suspect]
     Indication: COLITIS ULCERATIVE
     Dates: start: 201210, end: 201304
  2. HUMIRA [Suspect]
     Dosage: LOADING DOSE
     Dates: start: 20130920, end: 20130920
  3. IMURAN [Concomitant]
     Indication: COLITIS ULCERATIVE
  4. ACIPHEX [Concomitant]
     Indication: GASTROOESOPHAGEAL REFLUX DISEASE
  5. NORCO [Concomitant]
     Indication: PAIN

REACTIONS (1)
  - Intestinal obstruction [Recovered/Resolved]
